FAERS Safety Report 7765038-5 (Version None)
Quarter: 2011Q3

REPORT INFORMATION
  Report Type: 
  Country: None (occurrence: None)
  Receive Date: 20110916
  Receipt Date: 20110909
  Transmission Date: 20111222
  Serious: Yes (Hospitalization, Other)
  Sender: FDA-Public Use
  Company Number: 2011SP025633

PATIENT
  Age: 27 Year
  Sex: Female
  Weight: 158 kg

DRUGS (2)
  1. NUVARING [Suspect]
     Indication: MENORRHAGIA
     Dates: start: 20090201, end: 20090601
  2. MULTI-VITAMIN [Concomitant]

REACTIONS (6)
  - PAIN [None]
  - PULMONARY EMBOLISM [None]
  - HEART RATE IRREGULAR [None]
  - ANXIETY [None]
  - MYOCARDIAL INFARCTION [None]
  - PULMONARY HYPERTENSION [None]
